FAERS Safety Report 18630930 (Version 2)
Quarter: 2021Q1

REPORT INFORMATION
  Report Type: Report from Study
  Country: JP (occurrence: JP)
  Receive Date: 20201218
  Receipt Date: 20210222
  Transmission Date: 20210419
  Serious: Yes (Death, Other)
  Sender: FDA-Public Use
  Company Number: JP-AMGEN-JPNCT2020203978

PATIENT
  Age: 80 Year
  Sex: Male

DRUGS (14)
  1. ROMIPLOSTIM [Suspect]
     Active Substance: ROMIPLOSTIM
     Dosage: 720 MICROGRAM, QWK
     Route: 058
     Dates: start: 20191206, end: 20191227
  2. PRIMOBOLAN [METENOLONE ACETATE] [Concomitant]
     Active Substance: METHENOLONE ACETATE
     Dosage: UNK
     Route: 048
  3. AVOLVE [Concomitant]
     Active Substance: DUTASTERIDE
     Indication: BENIGN PROSTATIC HYPERPLASIA
     Dosage: UNK
     Route: 048
  4. ROMIPLOSTIM [Suspect]
     Active Substance: ROMIPLOSTIM
     Dosage: 870 MICROGRAM, QWK
     Route: 058
     Dates: start: 20200103, end: 20200306
  5. PRIMOBOLAN [METENOLONE ACETATE] [Concomitant]
     Active Substance: METHENOLONE ACETATE
     Indication: APLASTIC ANAEMIA
     Dosage: UNK
     Route: 048
  6. URIEF [Concomitant]
     Active Substance: SILODOSIN
     Dosage: UNK
     Route: 048
  7. URIEF [Concomitant]
     Active Substance: SILODOSIN
     Indication: BENIGN PROSTATIC HYPERPLASIA
     Dosage: UNK
     Route: 048
  8. AVOLVE [Concomitant]
     Active Substance: DUTASTERIDE
     Dosage: UNK
     Route: 048
  9. FUROSEMIDE. [Concomitant]
     Active Substance: FUROSEMIDE
     Indication: CHRONIC KIDNEY DISEASE
     Dosage: UNK
     Route: 048
  10. ROMIPLOSTIM [Suspect]
     Active Substance: ROMIPLOSTIM
     Indication: APLASTIC ANAEMIA
     Dosage: 576 MICROGRAM, QWK
     Route: 058
     Dates: start: 20191018, end: 20191129
  11. NESP [Concomitant]
     Active Substance: DARBEPOETIN ALFA
     Indication: NEPHROGENIC ANAEMIA
     Dosage: UNK
     Route: 065
  12. SAMSCA [Concomitant]
     Active Substance: TOLVAPTAN
     Indication: CHRONIC KIDNEY DISEASE
     Dosage: UNK
     Route: 048
  13. FUROSEMIDE. [Concomitant]
     Active Substance: FUROSEMIDE
     Dosage: UNK
     Route: 048
  14. SAMSCA [Concomitant]
     Active Substance: TOLVAPTAN
     Dosage: UNK
     Route: 048

REACTIONS (1)
  - Pulmonary haemorrhage [Fatal]

NARRATIVE: CASE EVENT DATE: 20200219
